FAERS Safety Report 4553333-2 (Version None)
Quarter: 2005Q1

REPORT INFORMATION
  Report Type: 
  Country: None (occurrence: None)
  Receive Date: 20050112
  Receipt Date: 20041223
  Transmission Date: 20050727
  Serious: Yes (Hospitalization)
  Sender: FDA-Public Use
  Company Number: US_0405103329

PATIENT
  Age: 50 Year
  Sex: Female
  Weight: 71 kg

DRUGS (23)
  1. ZYPREXA [Suspect]
     Dosage: 20 MG /1 AT BEDTIME
     Dates: start: 19981230
  2. SINEQUAN [Concomitant]
  3. REMERON (MIRTAZAPINE ORIFARM) [Concomitant]
  4. PAXIL [Concomitant]
  5. ZOLOFT [Concomitant]
  6. GLIPIZIDE [Concomitant]
  7. NOVOLIN NPH(INSULIN HUMAN INJECTION, ISOPHANE) [Concomitant]
  8. GLUCOPHAGE [Concomitant]
  9. MULTI-VITAMIN [Concomitant]
  10. NITROSTAT [Concomitant]
  11. VISTARIL [Concomitant]
  12. TIMOPTIC [Concomitant]
  13. ZOCOR(SIMVASTATIN RATIOPHARM) [Concomitant]
  14. CROMOLYN SODIUM [Concomitant]
  15. BUSPAR [Concomitant]
  16. CORAL CALCIUM [Concomitant]
  17. LISINOPRIL [Concomitant]
  18. ZETIA [Concomitant]
  19. MOTRIN [Concomitant]
  20. VICODIN [Concomitant]
  21. ASPIRIN [Concomitant]
  22. XALATAN [Concomitant]
  23. HYDROCHLOROTHIAZIDE [Concomitant]

REACTIONS (20)
  - BACK PAIN [None]
  - CHEST PAIN [None]
  - CONDITION AGGRAVATED [None]
  - CORONARY ARTERY DISEASE [None]
  - DENTAL CARIES [None]
  - DIABETES MELLITUS [None]
  - DIPLOPIA [None]
  - DIZZINESS [None]
  - DRUG INEFFECTIVE [None]
  - DYSPNOEA [None]
  - FALL [None]
  - HYPERTENSION [None]
  - HYPOTENSION [None]
  - IMPAIRED HEALING [None]
  - JOINT DISLOCATION [None]
  - RADIUS FRACTURE [None]
  - TINNITUS [None]
  - TOOTH ABSCESS [None]
  - TOOTH DISORDER [None]
  - URINARY TRACT INFECTION [None]
